FAERS Safety Report 8241133-1 (Version None)
Quarter: 2012Q1

REPORT INFORMATION
  Report Type: 
  Country: None (occurrence: None)
  Receive Date: 20120328
  Receipt Date: 20120320
  Transmission Date: 20120608
  Serious: Yes (Other)
  Sender: FDA-Public Use
  Company Number: PHHY2012BE025479

PATIENT
  Age: 58 Year
  Sex: Female

DRUGS (6)
  1. PRAXILENE [Concomitant]
     Indication: ANGIOPATHY
     Dates: start: 20111220
  2. ONBREZ [Suspect]
     Indication: LUNG NEOPLASM MALIGNANT
  3. ENOXAPARIN SODIUM [Concomitant]
     Indication: ANGIOPATHY
     Dates: start: 20110701, end: 20120110
  4. LORMETAZEPAM [Concomitant]
     Indication: SLEEP DISORDER
  5. ASPIRIN [Concomitant]
     Indication: ANGIOPATHY
     Dates: start: 20110801
  6. ONBREZ [Suspect]
     Indication: CHRONIC OBSTRUCTIVE PULMONARY DISEASE
     Dosage: 150 UG, UNK
     Dates: start: 20110701, end: 20120320

REACTIONS (7)
  - HEAD DISCOMFORT [None]
  - MYALGIA [None]
  - EPISTAXIS [None]
  - PARAESTHESIA [None]
  - SENSE OF OPPRESSION [None]
  - COUGH [None]
  - BURNING SENSATION [None]
